FAERS Safety Report 12631766 (Version 2)
Quarter: 2016Q3

REPORT INFORMATION
  Report Type: Spontaneous
  Country: US (occurrence: US)
  Receive Date: 20160808
  Receipt Date: 20160808
  Transmission Date: 20161109
  Serious: No
  Sender: FDA-Public Use
  Company Number: US-BEH-2016060953

PATIENT
  Sex: Female
  Weight: 73 kg

DRUGS (22)
  1. L-M-X [Concomitant]
  2. BUPROPION. [Concomitant]
     Active Substance: BUPROPION
  3. ADULT ASPIRIN [Concomitant]
  4. IPRATROPIUM SPRAY [Concomitant]
  5. LIDOCAINE/PRILOCAINE [Concomitant]
     Active Substance: LIDOCAINE\PRILOCAINE
  6. METFORMIN [Concomitant]
     Active Substance: METFORMIN HYDROCHLORIDE
  7. DIPHENHYDRAMINE. [Concomitant]
     Active Substance: DIPHENHYDRAMINE
  8. FOLIC ACID. [Concomitant]
     Active Substance: FOLIC ACID
  9. ADVAIR HFA [Concomitant]
     Active Substance: FLUTICASONE PROPIONATE\SALMETEROL XINAFOATE
  10. MUCINEX D [Concomitant]
     Active Substance: GUAIFENESIN\PSEUDOEPHEDRINE HYDROCHLORIDE
  11. HIZENTRA [Suspect]
     Active Substance: HUMAN IMMUNOGLOBULIN G
     Indication: IMMUNODEFICIENCY COMMON VARIABLE
     Route: 058
  12. METOPROLOL. [Concomitant]
     Active Substance: METOPROLOL
  13. A-Z MULTIVITAMIN [Concomitant]
  14. HIZENTRA [Suspect]
     Active Substance: HUMAN IMMUNOGLOBULIN G
     Route: 058
  15. ALBUTEROL. [Concomitant]
     Active Substance: ALBUTEROL
  16. HIZENTRA [Suspect]
     Active Substance: HUMAN IMMUNOGLOBULIN G
     Route: 058
  17. HIZENTRA [Suspect]
     Active Substance: HUMAN IMMUNOGLOBULIN G
     Indication: HYPOGAMMAGLOBULINAEMIA
     Route: 058
  18. EPIPEN [Concomitant]
     Active Substance: EPINEPHRINE
  19. POTASSIUM CL [Concomitant]
     Active Substance: POTASSIUM CHLORIDE
  20. PRAVASTATIN. [Concomitant]
     Active Substance: PRAVASTATIN
  21. ROBITUSSIN COUGH + COLD SYRUP [Concomitant]
  22. LEVOTHYROXINE. [Concomitant]
     Active Substance: LEVOTHYROXINE

REACTIONS (1)
  - Bronchitis [Unknown]
